FAERS Safety Report 4663156-1 (Version None)
Quarter: 2005Q2

REPORT INFORMATION
  Report Type: 
  Country: None (occurrence: None)
  Receive Date: 20050513
  Receipt Date: 20050427
  Transmission Date: 20051028
  Serious: Yes (Death)
  Sender: FDA-Public Use
  Company Number: 2005USFACT00519

PATIENT
  Age: 47 Year
  Sex: Male
  Weight: 91.6 kg

DRUGS (7)
  1. FACTIVE [Suspect]
     Indication: RESPIRATORY TRACT INFECTION BACTERIAL
     Dosage: 160.00 MG, SINGLE, ORAL
     Route: 048
     Dates: start: 20050301, end: 20030301
  2. NORVASC [Concomitant]
  3. TOPROL-XL [Concomitant]
  4. ALLOPURINOL [Concomitant]
  5. ALBUTEROL [Concomitant]
  6. TRAZODONE 9TRAZODONE) [Concomitant]
  7. ANTUSS MR (EWPHEDRINE HYDROCHLORIDE, CHLORPHENAMINE MALEATE, TERPIN HY [Concomitant]

REACTIONS (1)
  - FEELING COLD [None]
